FAERS Safety Report 15268722 (Version 2)
Quarter: 2018Q3

REPORT INFORMATION
  Report Type: Spontaneous
  Country: JP (occurrence: JP)
  Receive Date: 20180813
  Receipt Date: 20180820
  Transmission Date: 20181010
  Serious: Yes (Other)
  Sender: FDA-Public Use
  Company Number: JP-BEH-2018093560

PATIENT
  Age: 70 Year
  Sex: Male

DRUGS (5)
  1. FACTOR VIII RECOMBINANT (NC) [Suspect]
     Active Substance: ANTIHEMOPHILIC FACTOR, HUMAN RECOMBINANT
     Indication: FACTOR VIII DEFICIENCY
     Dosage: UNK, THERAPEUTIC
     Route: 042
  2. FACTOR VIIA, RECOMBINANT [Concomitant]
     Active Substance: COAGULATION FACTOR VIIA RECOMBINANT HUMAN
     Indication: FACTOR VIII DEFICIENCY
     Dosage: 90 ?G/KG, UNK
     Route: 065
  3. FACTOR VIII RECOMBINANT (NC) [Suspect]
     Active Substance: ANTIHEMOPHILIC FACTOR, HUMAN RECOMBINANT
     Dosage: 50 IU/KG, TIW, ITI
     Route: 042
  4. FACTOR VIII RECOMBINANT (NC) [Suspect]
     Active Substance: ANTIHEMOPHILIC FACTOR, HUMAN RECOMBINANT
     Dosage: 100 IU/KG, UNK, ITI
     Route: 042
  5. FACTOR VIII RECOMBINANT (NC) [Suspect]
     Active Substance: ANTIHEMOPHILIC FACTOR, HUMAN RECOMBINANT
     Indication: IMMUNE TOLERANCE INDUCTION
     Dosage: UNK UNK, TIW, PROPHYLACTIC
     Route: 042

REACTIONS (2)
  - Factor VIII inhibition [Unknown]
  - Drug ineffective for unapproved indication [Unknown]
